FAERS Safety Report 4623096-0 (Version None)
Quarter: 2005Q1

REPORT INFORMATION
  Report Type: 
  Country: None (occurrence: None)
  Receive Date: 20050328
  Receipt Date: 20050328
  Transmission Date: 20050727
  Serious: Yes (Death)
  Sender: FDA-Public Use
  Company Number: None

PATIENT
  Sex: Male
  Weight: 104.3273 kg

DRUGS (6)
  1. FACTIVE [Suspect]
     Indication: RESPIRATORY TRACT INFECTION
     Dosage: 320MG ONCE DAILY ORALLY
     Route: 048
     Dates: start: 20041213, end: 20041216
  2. TRILEPTAL [Concomitant]
  3. GLUCOVANCE [Concomitant]
  4. PRAVACHOL [Concomitant]
  5. AVALIDE [Concomitant]
  6. NEXIUM [Concomitant]

REACTIONS (15)
  - ANOREXIA [None]
  - CARDIOMEGALY [None]
  - CONGESTIVE CARDIOMYOPATHY [None]
  - DYSGEUSIA [None]
  - EXCORIATION [None]
  - FALL [None]
  - FEELING ABNORMAL [None]
  - INSOMNIA [None]
  - NAUSEA [None]
  - PARAESTHESIA [None]
  - RECTAL HAEMORRHAGE [None]
  - RESTLESSNESS [None]
  - STOMACH DISCOMFORT [None]
  - SUDDEN DEATH [None]
  - VOMITING [None]
